FAERS Safety Report 14963341 (Version 7)
Quarter: 2018Q3

REPORT INFORMATION
  Report Type: Spontaneous
  Country: CA (occurrence: CA)
  Receive Date: 20180601
  Receipt Date: 20180706
  Transmission Date: 20181010
  Serious: Yes (Hospitalization, Other)
  Sender: FDA-Public Use
  Company Number: CA-CELLTRION INC.-2018CA020227

PATIENT

DRUGS (14)
  1. TRAMADOL. [Concomitant]
     Active Substance: TRAMADOL
     Dosage: UNK
  2. CYMBALTA [Concomitant]
     Active Substance: DULOXETINE HYDROCHLORIDE
     Dosage: UNK
  3. INFLECTRA [Suspect]
     Active Substance: INFLIXIMAB-DYYB
     Indication: RHEUMATOID ARTHRITIS
     Dosage: 200 MG, CYCLIC (EVERY 0, 2, 6 WEEKS, THEN EVERY 8 WEEKS)
     Route: 042
     Dates: start: 20180514
  4. ENBREL [Concomitant]
     Active Substance: ETANERCEPT
     Dosage: UNK
  5. METHOTREXATE. [Concomitant]
     Active Substance: METHOTREXATE
  6. GABAPENTIN 1A FARMA [Concomitant]
     Active Substance: GABAPENTIN
  7. XELJANZ [Concomitant]
     Active Substance: TOFACITINIB CITRATE
  8. OXYCOCET [Concomitant]
     Active Substance: ACETAMINOPHEN\OXYCODONE HYDROCHLORIDE
     Dosage: UNK
  9. REMICADE [Concomitant]
     Active Substance: INFLIXIMAB
  10. CIMZIA [Concomitant]
     Active Substance: CERTOLIZUMAB PEGOL
  11. WELLBUTRIN [Concomitant]
     Active Substance: BUPROPION HYDROCHLORIDE
     Dosage: UNK
  12. INFLECTRA [Suspect]
     Active Substance: INFLIXIMAB-DYYB
     Dosage: 200 MG, CYCLIC (EVERY 0, 2, 6 WEEKS, THEN EVERY 8 WEEKS)
     Route: 042
     Dates: start: 20180621, end: 20180621
  13. HUMIRA [Concomitant]
     Active Substance: ADALIMUMAB
  14. PLAQUENIL [Concomitant]
     Active Substance: HYDROXYCHLOROQUINE SULFATE
     Dosage: UNK

REACTIONS (16)
  - Hypokinesia [Unknown]
  - Eyelid ptosis [Recovering/Resolving]
  - Heart rate irregular [Unknown]
  - Erythema [Unknown]
  - Feeling hot [Unknown]
  - Pain [Unknown]
  - Asthenia [Not Recovered/Not Resolved]
  - Product use issue [Unknown]
  - Bronchitis [Unknown]
  - Flushing [Unknown]
  - Condition aggravated [Unknown]
  - Asthenia [Unknown]
  - Sensory loss [Unknown]
  - Blood pressure fluctuation [Unknown]
  - Pneumonia [Not Recovered/Not Resolved]
  - Fatigue [Not Recovered/Not Resolved]

NARRATIVE: CASE EVENT DATE: 20180621
